FAERS Safety Report 9331911 (Version 1)
Quarter: 2013Q2

REPORT INFORMATION
  Report Type: Spontaneous
  Country: US (occurrence: US)
  Receive Date: 20130605
  Receipt Date: 20130605
  Transmission Date: 20140414
  Serious: Yes (Other)
  Sender: FDA-Public Use
  Company Number: US-FRI-1000045588

PATIENT
  Age: 70 Year
  Sex: Female

DRUGS (1)
  1. ARMOUR THYROID [Suspect]
     Indication: HYPOTHYROIDISM
     Dates: start: 2011

REACTIONS (2)
  - Body temperature decreased [Not Recovered/Not Resolved]
  - Drug ineffective [Recovered/Resolved]
